FAERS Safety Report 8930545 (Version 1)
Quarter: 2012Q4

REPORT INFORMATION
  Report Type: 
  Country: DE (occurrence: DE)
  Receive Date: 20121128
  Receipt Date: 20121128
  Transmission Date: 20130627
  Serious: Yes (Hospitalization)
  Sender: FDA-Public Use
  Company Number: PHHO2012DE002872

PATIENT
  Age: 74 Year
  Sex: Male
  Weight: 83 kg

DRUGS (9)
  1. AFINITOR [Suspect]
     Indication: METASTATIC RENAL CELL CARCINOMA
     Dosage: 10 mg, QD
     Route: 048
     Dates: start: 20101215, end: 20120207
  2. AFINITOR [Suspect]
     Dosage: 5 mg, QD
     Route: 048
     Dates: start: 20120208, end: 20120214
  3. SPIRIVA [Concomitant]
     Indication: CHRONIC OBSTRUCTIVE PULMONARY DISEASE
     Dosage: UNK
     Dates: start: 2002
  4. RAMIPRIL [Concomitant]
     Indication: HYPERTENSION
     Dosage: UNK
     Dates: start: 1995
  5. AMIODARONE [Concomitant]
     Indication: ARRHYTHMIA
  6. BISO LICH [Concomitant]
     Indication: HYPERTENSION
     Dosage: UNK
     Dates: start: 1995
  7. OMEPRAZOLE [Concomitant]
     Dosage: UNK
     Dates: start: 2005
  8. TORASEMIDE [Concomitant]
     Indication: HYPERTENSION
     Dosage: UNK
     Dates: start: 2002
  9. NEURALGIN [Concomitant]
     Indication: PROPHYLAXIS
     Dosage: UNK
     Dates: start: 20111231, end: 20111231

REACTIONS (1)
  - Emphysema [Recovered/Resolved]
